FAERS Safety Report 16685832 (Version 5)
Quarter: 2020Q1

REPORT INFORMATION
  Report Type: Report from Study
  Country: CA (occurrence: CA)
  Receive Date: 20190809
  Receipt Date: 20200116
  Transmission Date: 20200409
  Serious: Yes (Hospitalization, Other)
  Sender: FDA-Public Use
  Company Number: CA-TAKEDA-2019TUS045092

PATIENT
  Age: 73 Year
  Sex: Female

DRUGS (21)
  1. VEDOLIZUMAB [Suspect]
     Active Substance: VEDOLIZUMAB
     Dosage: 300 MILLIGRAM, Q4WEEKS
     Route: 042
     Dates: start: 20190906
  2. ACETAMINOPHEN. [Concomitant]
     Active Substance: ACETAMINOPHEN
     Dosage: UNK
  3. TOLOXIN                            /00017701/ [Concomitant]
     Dosage: 0.125 MILLIGRAM
  4. MOMETASONE [Concomitant]
     Active Substance: MOMETASONE
     Dosage: 50 MICROGRAM
     Route: 045
  5. VEDOLIZUMAB [Suspect]
     Active Substance: VEDOLIZUMAB
     Indication: CROHN^S DISEASE
     Dosage: 300 MILLIGRAM
     Route: 042
     Dates: start: 20190620
  6. PROCHLORAZINE [Concomitant]
     Dosage: UNK
     Route: 048
  7. BISOPROLOL [Concomitant]
     Active Substance: BISOPROLOL
     Dosage: UNK
  8. CLONAZEPAM. [Concomitant]
     Active Substance: CLONAZEPAM
     Dosage: UNK
  9. ALENDRONATE [Concomitant]
     Active Substance: ALENDRONATE SODIUM
     Dosage: UNK
  10. ZENHALE [Concomitant]
     Active Substance: FORMOTEROL FUMARATE\MOMETASONE FUROATE
     Dosage: UNK
  11. VEDOLIZUMAB [Suspect]
     Active Substance: VEDOLIZUMAB
     Dosage: 300 MILLIGRAM, Q4WEEKS
     Route: 042
  12. CLONIDINE. [Concomitant]
     Active Substance: CLONIDINE
     Dosage: UNK
  13. HYDERM                             /00028601/ [Concomitant]
     Dosage: UNK
  14. DEXAMETHASONE. [Concomitant]
     Active Substance: DEXAMETHASONE
     Dosage: 4 MILLIGRAM, BID
     Route: 048
  15. IRON [Concomitant]
     Active Substance: IRON
     Dosage: UNK
  16. QUETIAPINE. [Concomitant]
     Active Substance: QUETIAPINE
     Dosage: UNK
  17. NORITATE [Concomitant]
     Active Substance: METRONIDAZOLE
     Dosage: UNK
  18. AVAMYS [Concomitant]
     Active Substance: FLUTICASONE FUROATE
     Dosage: UNK
  19. CLINDAMYCIN. [Concomitant]
     Active Substance: CLINDAMYCIN
     Dosage: UNK
  20. PROCHLORPERAZINE. [Concomitant]
     Active Substance: PROCHLORPERAZINE
     Dosage: UNK
  21. EZETIMIBE. [Concomitant]
     Active Substance: EZETIMIBE
     Dosage: 10 MILLIGRAM

REACTIONS (10)
  - Asthenia [Not Recovered/Not Resolved]
  - Headache [Unknown]
  - Mouth ulceration [Unknown]
  - Antidiuretic hormone abnormality [Unknown]
  - Off label use [Unknown]
  - Hyponatraemia [Unknown]
  - Nausea [Unknown]
  - Throat cancer [Unknown]
  - Paraesthesia [Unknown]
  - Fatigue [Unknown]

NARRATIVE: CASE EVENT DATE: 2019
